FAERS Safety Report 6282738-7 (Version None)
Quarter: 2009Q3

REPORT INFORMATION
  Report Type: 
  Country: None (occurrence: None)
  Receive Date: 20090722
  Receipt Date: 20090708
  Transmission Date: 20100115
  Serious: Yes (Death, Hospitalization)
  Sender: FDA-Public Use
  Company Number: THYR-10119

PATIENT
  Age: 96 Year
  Sex: Female
  Weight: 41.4 kg

DRUGS (6)
  1. THYROGEN [Suspect]
     Indication: GOITRE
     Dosage: 0.3 MG, QD, INTRAMUSCULAR
     Route: 030
     Dates: start: 20020225, end: 20020226
  2. RADIOACTIVE IODINE SOLUTION (SODIUM IODIDE (131)) MCI [Suspect]
     Indication: GOITRE
     Dosage: 75 MCI
     Dates: start: 20020227, end: 20020227
  3. ALPHAGAN [Concomitant]
  4. XALATAN [Concomitant]
  5. ENTERAL TUBE FEEDS [Concomitant]
  6. ATENOLOL [Concomitant]

REACTIONS (13)
  - ANXIETY [None]
  - ATRIAL FIBRILLATION [None]
  - BLOOD CREATININE INCREASED [None]
  - BLOOD UREA INCREASED [None]
  - CONFUSIONAL STATE [None]
  - HYPERKALAEMIA [None]
  - HYPERTHYROIDISM [None]
  - MUSCULOSKELETAL DISCOMFORT [None]
  - NAUSEA [None]
  - PAIN [None]
  - RADIATION THYROIDITIS [None]
  - RESPIRATORY FAILURE [None]
  - TRANSAMINASES INCREASED [None]
